FAERS Safety Report 6931861-X (Version None)
Quarter: 2010Q3

REPORT INFORMATION
  Report Type: 
  Country: None (occurrence: None)
  Receive Date: 20100819
  Receipt Date: 20100811
  Transmission Date: 20110219
  Serious: Yes (Death, Hospitalization)
  Sender: FDA-Public Use
  Company Number: FR-PFIZER INC-2010098279

PATIENT
  Age: 58 Year
  Sex: Male

DRUGS (9)
  1. SOLU-MEDROL [Suspect]
     Dosage: UNK
     Dates: start: 20100420, end: 20100425
  2. VANCOMYCIN [Suspect]
     Dosage: UNK
     Route: 041
     Dates: start: 20100418, end: 20100512
  3. CANCIDAS [Suspect]
     Dosage: UNK
     Route: 041
     Dates: start: 20100419, end: 20100513
  4. NEXIUM [Suspect]
     Dosage: UNK
     Route: 041
     Dates: start: 20100419
  5. PARACETAMOL (PERFALGAN) [Suspect]
     Dosage: UNK
     Route: 041
     Dates: start: 20100401, end: 20100506
  6. ROCEPHIN [Suspect]
     Dosage: UNK
     Dates: start: 20100426, end: 20100504
  7. PIPERACILLIN AND TAZOBACTAM [Suspect]
     Dosage: UNK
     Dates: start: 20100419, end: 20100424
  8. ZOVIRAX [Suspect]
     Dosage: UNK
     Dates: start: 20100419, end: 20100424
  9. TEGELINE [Suspect]
     Dosage: UNK
     Dates: start: 20100420, end: 20100424

REACTIONS (1)
  - STEVENS-JOHNSON SYNDROME [None]
